FAERS Safety Report 21892121 (Version 2)
Quarter: 2023Q1

REPORT INFORMATION
  Report Type: Spontaneous
  Country: ES (occurrence: ES)
  Receive Date: 20230120
  Receipt Date: 20230228
  Transmission Date: 20230418
  Serious: Yes (Other)
  Sender: FDA-Public Use
  Company Number: ES-NOVOPROD-1011938

PATIENT
  Age: 46 Year
  Sex: Female

DRUGS (5)
  1. NOVORAPID [Suspect]
     Active Substance: INSULIN ASPART
     Indication: Type 1 diabetes mellitus
     Dosage: UNK
     Route: 058
     Dates: start: 202209
  2. NOVORAPID [Suspect]
     Active Substance: INSULIN ASPART
     Dosage: UNK (NEW CARTRIDGE)
     Route: 058
  3. FERROSOL [FERROUS SULFATE] [Concomitant]
     Indication: Product used for unknown indication
     Dosage: UNK
  4. CHOLECALCIFEROL [Concomitant]
     Active Substance: CHOLECALCIFEROL
     Indication: Product used for unknown indication
     Dosage: UNK
  5. ATORVASTATIN [Concomitant]
     Active Substance: ATORVASTATIN
     Indication: Product used for unknown indication
     Dosage: UNK

REACTIONS (4)
  - Diabetic ketoacidosis [Recovered/Resolved]
  - Product physical issue [Unknown]
  - Product leakage [Unknown]
  - Product leakage [Unknown]

NARRATIVE: CASE EVENT DATE: 20230105
